FAERS Safety Report 8321193-X (Version None)
Quarter: 2012Q1

REPORT INFORMATION
  Report Type: 
  Country: None (occurrence: None)
  Receive Date: 20120315
  Receipt Date: 20110127
  Transmission Date: 20120608
  Serious: No
  Sender: FDA-Public Use
  Company Number: PHHY2011US11598

PATIENT
  Sex: Female

DRUGS (1)
  1. GILENYA [Suspect]
     Indication: MULTIPLE SCLEROSIS
     Dosage: 0.5 MG, ORAL
     Route: 048

REACTIONS (4)
  - IMMUNE SYSTEM DISORDER [None]
  - OROPHARYNGEAL PAIN [None]
  - MUSCULOSKELETAL STIFFNESS [None]
  - MALAISE [None]
